FAERS Safety Report 10463449 (Version 1)
Quarter: 2014Q3

REPORT INFORMATION
  Report Type: Spontaneous
  Country: US (occurrence: None)
  Receive Date: 20140917
  Receipt Date: 20140917
  Transmission Date: 20150326
  Serious: Yes (Life-Threatening, Hospitalization)
  Sender: FDA-Public Use
  Company Number: 200030676

PATIENT
  Age: 70 Year
  Sex: Female
  Weight: 123.38 kg

DRUGS (6)
  1. TARTAR CONTROL PLUS [Suspect]
     Active Substance: EUCALYPTOL\MENTHOL\METHYL SALICYLATE\THYMOL
     Indication: DENTAL PLAQUE
     Dosage: 20ML GARGLE, USED TWICE 1 APPROX. 1-2 DAYS
  2. MECLINZINE 25MG ORAL TAB [Concomitant]
  3. FLUTICASONE 44MCG/ACTUATION INHL A [Concomitant]
  4. ALBUTEROL 90MCG/ACTUATION INHL HFAA [Concomitant]
  5. BENZONATATE 100 MG ORAL CAP [Concomitant]
  6. ATROVASTATIN 10MG ORAL TAB [Concomitant]

REACTIONS (5)
  - Throat irritation [None]
  - Pneumonia [None]
  - Bronchitis [None]
  - Accidental exposure to product [None]
  - Dyspnoea [None]

NARRATIVE: CASE EVENT DATE: 20140820
